FAERS Safety Report 6599682-8 (Version None)
Quarter: 2010Q1

REPORT INFORMATION
  Report Type: 
  Country: None (occurrence: None)
  Receive Date: 20100224
  Receipt Date: 20100218
  Transmission Date: 20100710
  Serious: Yes (Other)
  Sender: FDA-Public Use
  Company Number: US-ELI_LILLY_AND_COMPANY-US201002006058

PATIENT
  Age: 56 Year
  Sex: Female

DRUGS (1)
  1. ALIMTA [Suspect]
     Dosage: 500 MG, UNKNOWN
     Route: 065

REACTIONS (1)
  - CARDIAC FAILURE CONGESTIVE [None]
